FAERS Safety Report 16903212 (Version 2)
Quarter: 2020Q1

REPORT INFORMATION
  Report Type: Spontaneous
  Country: JP (occurrence: JP)
  Receive Date: 20191010
  Receipt Date: 20200304
  Transmission Date: 20200409
  Serious: Yes (Death)
  Sender: FDA-Public Use
  Company Number: JP-KYOWAKIRIN-2019AKK008169

PATIENT

DRUGS (4)
  1. REVLIMID [Suspect]
     Active Substance: LENALIDOMIDE
     Indication: ADULT T-CELL LYMPHOMA/LEUKAEMIA
     Dosage: 10 MG
     Route: 048
     Dates: start: 201808
  2. PREDONINE [PREDNISOLONE SODIUM SUCCINATE] [Concomitant]
     Active Substance: PREDNISOLONE SODIUM SUCCINATE
     Indication: RASH
     Dosage: 60 MG, QD
     Route: 042
     Dates: start: 20180828, end: 20180905
  3. POTELIGEO [Suspect]
     Active Substance: MOGAMULIZUMAB-KPKC
     Indication: ADULT T-CELL LYMPHOMA/LEUKAEMIA
     Dosage: UNK, 16 COURSES
     Route: 041
  4. KENKETU GLOVENIN-I [Concomitant]
     Active Substance: HUMAN IMMUNOGLOBULIN G
     Indication: RASH
     Dosage: 20000 MG, 5 DOSES
     Route: 042
     Dates: start: 20180830, end: 20180903

REACTIONS (2)
  - Toxic epidermal necrolysis [Fatal]
  - Cardiac failure acute [Fatal]

NARRATIVE: CASE EVENT DATE: 20180825
